FAERS Safety Report 13406563 (Version 2)
Quarter: 2017Q2

REPORT INFORMATION
  Report Type: Spontaneous
  Country: GR (occurrence: GR)
  Receive Date: 20170405
  Receipt Date: 20170511
  Transmission Date: 20170830
  Serious: Yes (Other)
  Sender: FDA-Public Use
  Company Number: GR-BAYER-2017-062491

PATIENT
  Age: 66 Year
  Sex: Female

DRUGS (9)
  1. STIVARGA [Suspect]
     Active Substance: REGORAFENIB
     Indication: COLON CANCER METASTATIC
     Dosage: DAILY DOSE 120 MG
     Route: 048
     Dates: start: 20170302
  2. VITAMIN B12 [Concomitant]
     Active Substance: CYANOCOBALAMIN
  3. STIVARGA [Suspect]
     Active Substance: REGORAFENIB
     Indication: COLON CANCER METASTATIC
     Dosage: DAILY DOSE 120 MG
     Route: 048
     Dates: start: 20170327
  4. STIVARGA [Suspect]
     Active Substance: REGORAFENIB
     Indication: COLON CANCER METASTATIC
     Dosage: DAILY DOSE 80 MG
     Route: 048
     Dates: start: 20170223
  5. STIVARGA [Suspect]
     Active Substance: REGORAFENIB
     Indication: COLON CANCER METASTATIC
     Dosage: DAILY DOSE 160 MG
     Dates: start: 20170309
  6. VITAMIN B6 [Concomitant]
     Active Substance: PYRIDOXINE HYDROCHLORIDE
  7. SELENIUM [Concomitant]
     Active Substance: SELENIUM
  8. STIVARGA [Suspect]
     Active Substance: REGORAFENIB
     Indication: COLON CANCER METASTATIC
     Dosage: DAILY DOSE 120 MG
     Route: 048
     Dates: start: 20170424
  9. VITAMIN B1 [Concomitant]
     Active Substance: THIAMINE HYDROCHLORIDE

REACTIONS (3)
  - Carcinoembryonic antigen increased [Recovering/Resolving]
  - Pyrexia [Recovered/Resolved]
  - Palmar-plantar erythrodysaesthesia syndrome [Recovered/Resolved]

NARRATIVE: CASE EVENT DATE: 20170312
